FAERS Safety Report 18497570 (Version 2)
Quarter: 2021Q1

REPORT INFORMATION
  Report Type: Report from Study
  Country: CA (occurrence: CA)
  Receive Date: 20201112
  Receipt Date: 20210329
  Transmission Date: 20210419
  Serious: Yes (Other)
  Sender: FDA-Public Use
  Company Number: CA-TAKEDA-2020TUS049334

PATIENT
  Age: 76 Year
  Sex: Male

DRUGS (23)
  1. DOCUSATE [Concomitant]
     Active Substance: DOCUSATE
     Dosage: UNK
  2. SEEBRI [Concomitant]
     Active Substance: GLYCOPYRROLATE
     Dosage: UNK
  3. VEDOLIZUMAB [Suspect]
     Active Substance: VEDOLIZUMAB
     Indication: CROHN^S DISEASE
     Dosage: 300 MILLIGRAM
     Route: 042
     Dates: start: 20160329
  4. BISOPROLOL [Concomitant]
     Active Substance: BISOPROLOL
     Dosage: UNK
  5. CALCIUM [Concomitant]
     Active Substance: CALCIUM
     Dosage: UNK
  6. SALBUTAMOL [Concomitant]
     Active Substance: ALBUTEROL
     Dosage: UNK
  7. VEDOLIZUMAB [Suspect]
     Active Substance: VEDOLIZUMAB
     Dosage: 300 MILLIGRAM
     Route: 042
     Dates: start: 20181112
  8. PREDNISONE. [Concomitant]
     Active Substance: PREDNISONE
     Dosage: 5 MILLIGRAM
     Dates: start: 20160107
  9. ASA [Concomitant]
     Active Substance: ASPIRIN
     Dosage: UNK
  10. PROLIA [Concomitant]
     Active Substance: DENOSUMAB
     Dosage: UNK
  11. VEDOLIZUMAB [Suspect]
     Active Substance: VEDOLIZUMAB
     Dosage: 300 MILLIGRAM
     Route: 042
  12. DOMPERIDONE [Concomitant]
     Active Substance: DOMPERIDONE
     Dosage: UNK
  13. ATORVASTATIN [Concomitant]
     Active Substance: ATORVASTATIN
     Dosage: UNK
  14. IRON [Concomitant]
     Active Substance: IRON
     Dosage: 300 MILLIGRAM
  15. NITRO?DUR [Concomitant]
     Active Substance: NITROGLYCERIN
     Dosage: 2.2 MILLIGRAM
  16. PANTOPRAZOLE [Concomitant]
     Active Substance: PANTOPRAZOLE
     Dosage: UNK
  17. VITAMIN D [VITAMIN D NOS] [Concomitant]
     Active Substance: VITAMIN D NOS
     Dosage: UNK
  18. NITROSPRAY [Concomitant]
     Active Substance: NITROGLYCERIN
     Dosage: UNK
  19. STELARA [Concomitant]
     Active Substance: USTEKINUMAB
     Dosage: UNK
     Dates: start: 20160311
  20. SYNTHROID [Concomitant]
     Active Substance: LEVOTHYROXINE SODIUM
     Dosage: UNK
  21. TAMSULOSIN [Concomitant]
     Active Substance: TAMSULOSIN
     Dosage: UNK
  22. TRAZODONE [Concomitant]
     Active Substance: TRAZODONE HYDROCHLORIDE
     Dosage: UNK
  23. COVERSYL [PERINDOPRIL ERBUMINE] [Concomitant]
     Active Substance: PERINDOPRIL ERBUMINE
     Dosage: UNK

REACTIONS (6)
  - Confusional state [Unknown]
  - Arthritis [Unknown]
  - COVID-19 [Unknown]
  - Pneumonia [Recovered/Resolved]
  - Asthenia [Unknown]
  - Essential tremor [Unknown]
